FAERS Safety Report 8501536-4 (Version None)
Quarter: 2012Q3

REPORT INFORMATION
  Report Type: 
  Country: None (occurrence: None)
  Receive Date: 20120710
  Receipt Date: 20120705
  Transmission Date: 20120928
  Serious: Yes (Hospitalization)
  Sender: FDA-Public Use
  Company Number: JP-PFIZER INC-2012158671

PATIENT
  Age: 80 Year
  Sex: Male

DRUGS (1)
  1. LYRICA [Suspect]
     Dosage: 50 MG, 1X/DAY
     Route: 048
     Dates: start: 20120621, end: 20120621

REACTIONS (1)
  - FACIAL SPASM [None]
